FAERS Safety Report 7025488-1 (Version None)
Quarter: 2010Q4

REPORT INFORMATION
  Report Type: 
  Country: None (occurrence: None)
  Receive Date: 20101001
  Receipt Date: 20100924
  Transmission Date: 20110411
  Serious: Yes (Other)
  Sender: FDA-Public Use
  Company Number: US-AMGEN-KDL441868

PATIENT
  Sex: Male
  Weight: 88.1 kg

DRUGS (8)
  1. PROCRIT [Suspect]
     Indication: PRODUCT USED FOR UNKNOWN INDICATION
     Route: 058
     Dates: start: 20100913, end: 20100924
  2. NORVASC [Concomitant]
     Route: 048
  3. FOLIC ACID/CYANOCOBALAMIN PYRIDOXINE [Concomitant]
     Route: 048
  4. LASIX [Concomitant]
     Route: 048
  5. ASPIRIN [Concomitant]
     Route: 048
  6. PLAVIX [Concomitant]
     Route: 048
  7. COREG [Concomitant]
     Route: 048
  8. SIMVASTATIN [Concomitant]
     Route: 048

REACTIONS (2)
  - PNEUMONIA [None]
  - PULMONARY OEDEMA [None]
